FAERS Safety Report 10167827 (Version 1)
Quarter: 2014Q2

REPORT INFORMATION
  Report Type: Spontaneous
  Country: US (occurrence: US)
  Receive Date: 20140512
  Receipt Date: 20140512
  Transmission Date: 20141212
  Serious: Yes (Other)
  Sender: FDA-Public Use
  Company Number: US-PFIZER INC-2014127370

PATIENT
  Age: 73 Year
  Sex: Female
  Weight: 54.42 kg

DRUGS (3)
  1. LYRICA [Suspect]
     Indication: PAIN IN EXTREMITY
     Dosage: 50 MG, 4X/DAY
  2. LYRICA [Suspect]
     Indication: PAIN IN EXTREMITY
  3. VITAMINS NOS [Concomitant]

REACTIONS (1)
  - Diabetes mellitus [Unknown]
